FAERS Safety Report 15204497 (Version 1)
Quarter: 2018Q3

REPORT INFORMATION
  Report Type: Spontaneous
  Country: GB (occurrence: GB)
  Receive Date: 20180726
  Receipt Date: 20180726
  Transmission Date: 20181010
  Serious: Yes (Hospitalization)
  Sender: FDA-Public Use
  Company Number: GB-PFIZER INC-2018296695

PATIENT
  Age: 8 Month

DRUGS (3)
  1. RITUXIMAB. [Suspect]
     Active Substance: RITUXIMAB
     Dosage: UNK
  2. SIROLIMUS. [Suspect]
     Active Substance: SIROLIMUS
     Dosage: UNK
  3. ROMIPLOSTIM [Suspect]
     Active Substance: ROMIPLOSTIM
     Dosage: UNK

REACTIONS (5)
  - Product use issue [Unknown]
  - Pulmonary haemorrhage [Unknown]
  - Aplasia pure red cell [Unknown]
  - Drug ineffective [Unknown]
  - Haemorrhage intracranial [Unknown]
